FAERS Safety Report 6999235-3 (Version None)
Quarter: 2010Q3

REPORT INFORMATION
  Report Type: 
  Country: None (occurrence: None)
  Receive Date: 20100920
  Receipt Date: 20100305
  Transmission Date: 20110219
  Serious: No
  Sender: FDA-Public Use
  Company Number: US-ASTRAZENECA-2010SE10020

PATIENT
  Age: 7758 Day
  Sex: Male
  Weight: 90.7 kg

DRUGS (1)
  1. SEROQUEL XR [Suspect]
     Indication: BIPOLAR I DISORDER
     Route: 048
     Dates: start: 20100120

REACTIONS (2)
  - DRUG INEFFECTIVE [None]
  - HYPERSOMNIA [None]
